FAERS Safety Report 24160636 (Version 1)
Quarter: 2024Q3

REPORT INFORMATION
  Report Type: Spontaneous
  Country: JP (occurrence: JP)
  Receive Date: 20240801
  Receipt Date: 20240801
  Transmission Date: 20241016
  Serious: No
  Sender: ALKEM
  Company Number: JP-ALKEM LABORATORIES LIMITED-JP-ALKEM-2024-05563

PATIENT
  Age: 83 Year
  Sex: Male

DRUGS (3)
  1. ITRACONAZOLE [Suspect]
     Active Substance: ITRACONAZOLE
     Indication: Herpes ophthalmic
     Dosage: 200 MILLIGRAM (DOSE ADJUSTMENT RECOMMENDED BASED ON RENAL FUNCTION)
     Route: 065
  2. MICONAZOLE [Concomitant]
     Active Substance: MICONAZOLE\MICONAZOLE NITRATE
     Indication: Herpes ophthalmic
     Dosage: UNK (0.1 PERCENT 6-TIMES DAILY)
     Route: 061
  3. Natamycin ophthalmic [Concomitant]
     Indication: Herpes ophthalmic
     Dosage: UNK (0.1 PERCENT 5-TIMES DAILY)
     Route: 047

REACTIONS (1)
  - Diarrhoea [Unknown]
